FAERS Safety Report 20030865 (Version 7)
Quarter: 2022Q2

REPORT INFORMATION
  Report Type: Report from Study
  Country: CN (occurrence: None)
  Receive Date: 20211103
  Receipt Date: 20220629
  Transmission Date: 20220720
  Serious: Yes (Life-Threatening, Hospitalization)
  Sender: FDA-Public Use
  Company Number: CN-ROCHE-2948784

PATIENT
  Age: 65 Year
  Sex: Male
  Weight: 63 kg

DRUGS (38)
  1. ATEZOLIZUMAB [Suspect]
     Active Substance: ATEZOLIZUMAB
     Indication: Oesophageal squamous cell carcinoma metastatic
     Dosage: MOST RECENT DOSE: 09/OCT/2021
     Route: 041
     Dates: start: 20210625
  2. TIRAGOLUMAB [Suspect]
     Active Substance: TIRAGOLUMAB
     Indication: Oesophageal squamous cell carcinoma metastatic
     Dosage: MOST RECENT DOSE: 09/OCT/2021
     Route: 042
     Dates: start: 20210625
  3. CISPLATIN [Suspect]
     Active Substance: CISPLATIN
     Indication: Oesophageal squamous cell carcinoma metastatic
     Dosage: MOST RECENT DOSE: 09/OCT/2021, 75 MG
     Route: 042
     Dates: start: 20210625
  4. PACLITAXEL [Suspect]
     Active Substance: PACLITAXEL
     Indication: Oesophageal squamous cell carcinoma metastatic
     Dosage: MOST RECENT DOSE: 09/OCT/2021
     Route: 042
     Dates: start: 20210625
  5. VALSARTAN [Concomitant]
     Active Substance: VALSARTAN
     Dates: start: 202203
  6. EPISTIN [Concomitant]
     Indication: Rash
     Route: 048
     Dates: start: 20210907, end: 20211002
  7. HALOMETASONE [Concomitant]
     Active Substance: HALOMETASONE
     Route: 061
     Dates: start: 20210907, end: 20211002
  8. FLUTICASONE PROPIONATE [Concomitant]
     Active Substance: FLUTICASONE PROPIONATE
     Indication: Rash
     Route: 061
     Dates: start: 20210907, end: 20211002
  9. FEBUXOSTAT [Concomitant]
     Active Substance: FEBUXOSTAT
     Indication: Hyperuricaemia
     Route: 048
     Dates: start: 20210904
  10. ILAPRAZOLE [Concomitant]
     Active Substance: ILAPRAZOLE
     Dates: start: 20211009, end: 20211011
  11. SODIUM CHLORIDE [Concomitant]
     Active Substance: SODIUM CHLORIDE
     Dates: start: 20211009, end: 20211011
  12. DEXTROSE\SODIUM CHLORIDE [Concomitant]
     Active Substance: DEXTROSE\SODIUM CHLORIDE
     Dates: start: 20211009, end: 20211011
  13. MANNITOL [Concomitant]
     Active Substance: MANNITOL
     Dates: start: 20211009, end: 20211011
  14. DEXTROSE [Concomitant]
     Active Substance: DEXTROSE
     Dates: start: 20211009, end: 20211011
  15. FOSAPITAN [Concomitant]
     Dates: start: 20211009, end: 20211009
  16. PALONOSETRON HYDROCHLORIDE [Concomitant]
     Active Substance: PALONOSETRON HYDROCHLORIDE
     Dates: start: 20211009, end: 20211009
  17. PALONOSETRON HYDROCHLORIDE [Concomitant]
     Active Substance: PALONOSETRON HYDROCHLORIDE
     Route: 048
     Dates: start: 20211011, end: 20211013
  18. PALONOSETRON HYDROCHLORIDE [Concomitant]
     Active Substance: PALONOSETRON HYDROCHLORIDE
     Dates: start: 20210918, end: 20210918
  19. FUROSEMIDE [Concomitant]
     Active Substance: FUROSEMIDE
     Dates: start: 20211010, end: 20211010
  20. MONTMORILLONITE [Concomitant]
     Active Substance: MONTMORILLONITE
     Indication: Diarrhoea
     Route: 048
     Dates: start: 20211010, end: 20211011
  21. ACETAMINOPHEN\CAFFEINE [Concomitant]
     Active Substance: ACETAMINOPHEN\CAFFEINE
     Indication: Pyrexia
     Route: 048
     Dates: start: 20211010, end: 20211010
  22. ILAPRAZOLE [Concomitant]
     Active Substance: ILAPRAZOLE
     Dates: start: 20210918, end: 20210918
  23. FOSAPREPITANT DIMEGLUMINE [Concomitant]
     Active Substance: FOSAPREPITANT DIMEGLUMINE
     Dates: start: 20210918, end: 20210918
  24. CIMETIDINE [Concomitant]
     Active Substance: CIMETIDINE
     Dates: start: 20210918, end: 20210918
  25. PROMETHAZINE [Concomitant]
     Active Substance: PROMETHAZINE HYDROCHLORIDE
     Dates: start: 20210918, end: 20210918
  26. DEXAMETHASONE SODIUM PHOSPHATE [Concomitant]
     Active Substance: DEXAMETHASONE SODIUM PHOSPHATE
     Route: 050
     Dates: start: 20210918, end: 20210918
  27. GLUTATHIONE [Concomitant]
     Active Substance: GLUTATHIONE
     Route: 050
     Dates: start: 20211029, end: 20211106
  28. GLUTATHIONE [Concomitant]
     Active Substance: GLUTATHIONE
     Route: 050
     Dates: start: 20211109, end: 20211115
  29. GLUTATHIONE [Concomitant]
     Active Substance: GLUTATHIONE
     Route: 050
     Dates: start: 20211123
  30. FERROUS SUCCINATE [Concomitant]
     Active Substance: FERROUS SUCCINATE
     Route: 048
     Dates: start: 20211029
  31. ERYTHROPOIETIN [Concomitant]
     Active Substance: ERYTHROPOIETIN
     Indication: Anaemia
     Route: 058
     Dates: start: 20211101, end: 20211106
  32. ERYTHROPOIETIN [Concomitant]
     Active Substance: ERYTHROPOIETIN
     Route: 058
     Dates: start: 20211110, end: 20211115
  33. GLYCERIN\LECITHIN\MEDIUM-CHAIN TRIGLYCERIDES\SOYBEAN OIL [Concomitant]
     Active Substance: GLYCERIN\LECITHIN\MEDIUM-CHAIN TRIGLYCERIDES\SOYBEAN OIL
     Indication: Nutritional supplementation
     Dates: start: 20211101, end: 20211102
  34. RABEPRAZOLE SODIUM [Concomitant]
     Active Substance: RABEPRAZOLE SODIUM
     Dates: start: 20211102
  35. DEXTROSE [Concomitant]
     Active Substance: DEXTROSE
     Dates: start: 20211030, end: 20211104
  36. VITAMIN C [Concomitant]
     Active Substance: ASCORBIC ACID
     Dates: start: 20211030, end: 20211104
  37. VITAMIN B6 [Concomitant]
     Active Substance: PYRIDOXINE HYDROCHLORIDE
     Indication: Nutritional supplementation
     Dates: start: 20211030, end: 20211104
  38. DEXTROSE\SODIUM CHLORIDE [Concomitant]
     Active Substance: DEXTROSE\SODIUM CHLORIDE
     Dates: start: 20211031, end: 20211101

REACTIONS (1)
  - Renal injury [Not Recovered/Not Resolved]

NARRATIVE: CASE EVENT DATE: 20211011
